FAERS Safety Report 10181554 (Version 4)
Quarter: 2014Q3

REPORT INFORMATION
  Report Type: Spontaneous
  Country: US (occurrence: US)
  Receive Date: 20140519
  Receipt Date: 20140827
  Transmission Date: 20150326
  Serious: Yes (Life-Threatening, Hospitalization, Other)
  Sender: FDA-Public Use
  Company Number: US-GLAXOSMITHKLINE-A1073602A

PATIENT
  Age: 89 Year
  Sex: Male
  Weight: 72.7 kg

DRUGS (8)
  1. PROTONIX [Concomitant]
     Active Substance: PANTOPRAZOLE SODIUM
  2. LANTUS [Concomitant]
     Active Substance: INSULIN GLARGINE
  3. LASIX [Concomitant]
     Active Substance: FUROSEMIDE
  4. COREG [Suspect]
     Active Substance: CARVEDILOL
     Indication: PRODUCT USED FOR UNKNOWN INDICATION
     Dosage: 25MG UNKNOWN
     Route: 048
     Dates: start: 20110131
  5. KCL [Concomitant]
     Active Substance: POTASSIUM CHLORIDE
  6. XARELTO [Concomitant]
     Active Substance: RIVAROXABAN
  7. LOSARTAN [Concomitant]
     Active Substance: LOSARTAN
  8. NOVOLOG [Concomitant]
     Active Substance: INSULIN ASPART

REACTIONS (6)
  - Renal failure [Recovering/Resolving]
  - Neoplasm malignant [Recovering/Resolving]
  - Deep vein thrombosis [Recovering/Resolving]
  - Pulmonary embolism [Recovering/Resolving]
  - Investigation [Unknown]
  - Thrombosis [Recovering/Resolving]

NARRATIVE: CASE EVENT DATE: 20140627
